FAERS Safety Report 24663325 (Version 3)
Quarter: 2025Q2

REPORT INFORMATION
  Report Type: Spontaneous
  Country: DE (occurrence: DE)
  Receive Date: 20241126
  Receipt Date: 20250428
  Transmission Date: 20250716
  Serious: Yes (Hospitalization)
  Sender: RHYTHM PHARMACEUTICALS
  Company Number: DE-PPDUS-2024RHM000491

PATIENT

DRUGS (4)
  1. IMCIVREE [Suspect]
     Active Substance: SETMELANOTIDE
     Indication: Laurence-Moon-Bardet-Biedl syndrome
     Route: 065
     Dates: start: 20230629
  2. IMCIVREE [Suspect]
     Active Substance: SETMELANOTIDE
     Route: 065
     Dates: start: 20240806, end: 20241107
  3. IMCIVREE [Suspect]
     Active Substance: SETMELANOTIDE
     Route: 065
     Dates: start: 20241130
  4. IMCIVREE [Suspect]
     Active Substance: SETMELANOTIDE
     Route: 065

REACTIONS (9)
  - Restlessness [Unknown]
  - Jaw operation [Unknown]
  - Thinking abnormal [Not Recovered/Not Resolved]
  - Photophobia [Not Recovered/Not Resolved]
  - Mental disorder [Not Recovered/Not Resolved]
  - Incorrect dose administered [Recovered/Resolved]
  - Intentional dose omission [Unknown]
  - Off label use [Recovered/Resolved]
  - Injection site pruritus [Unknown]

NARRATIVE: CASE EVENT DATE: 20240801
